FAERS Safety Report 9041972 (Version 1)
Quarter: 2013Q1

REPORT INFORMATION
  Report Type: Report from Study
  Country: US (occurrence: US)
  Receive Date: 20130129
  Receipt Date: 20130129
  Transmission Date: 20140127
  Serious: No
  Sender: FDA-Public Use
  Company Number: US-ABBOTT-12P-163-0905374-00

PATIENT
  Sex: Female
  Weight: 59.93 kg

DRUGS (6)
  1. HUMIRA 40 MG/0.8 ML PEN [Suspect]
     Indication: CROHN^S DISEASE
     Dates: end: 201112
  2. IMURAN [Concomitant]
     Indication: CROHN^S DISEASE
  3. IRON [Concomitant]
     Indication: MEDICAL DIET
  4. DICYCLOMINE [Concomitant]
     Indication: CROHN^S DISEASE
  5. CENTRUM MULTIVITAMIN [Concomitant]
     Indication: VITAMIN SUPPLEMENTATION
  6. UNKNOWN MEDICATION [Concomitant]
     Indication: CONTRACEPTION

REACTIONS (1)
  - Abdominal pain upper [Not Recovered/Not Resolved]
